FAERS Safety Report 5614838-6 (Version None)
Quarter: 2008Q1

REPORT INFORMATION
  Report Type: 
  Country: None (occurrence: None)
  Receive Date: 20080111
  Receipt Date: 20070420
  Transmission Date: 20080703
  Serious: Yes (Other)
  Sender: FDA-Public Use
  Company Number: HQWYE732620APR07

PATIENT
  Age: 62 Year
  Sex: Female

DRUGS (5)
  1. PREMPRO [Suspect]
     Indication: HOT FLUSH
     Dates: end: 20040701
  2. AVONEX [Suspect]
     Indication: MULTIPLE SCLEROSIS
     Dosage: 30 UG 1X PER 1 WK, INTRAMUSCULAR
     Route: 030
     Dates: start: 19980101, end: 20000101
  3. REBIF [Suspect]
     Indication: MULTIPLE SCLEROSIS
     Dates: start: 20030101, end: 20040701
  4. PAXIL [Concomitant]
  5. PROVIGIL [Concomitant]

REACTIONS (1)
  - BREAST CANCER [None]
